FAERS Safety Report 9938104 (Version 1)
Quarter: 2014Q1

REPORT INFORMATION
  Report Type: Spontaneous
  Country: US (occurrence: US)
  Receive Date: 20140303
  Receipt Date: 20140303
  Transmission Date: 20141002
  Serious: Yes (Other)
  Sender: FDA-Public Use
  Company Number: US-AMGEN-USASP2014014207

PATIENT
  Age: 65 Year
  Sex: Female

DRUGS (3)
  1. ENBREL [Suspect]
     Indication: RHEUMATOID ARTHRITIS
     Dosage: 50 MG, QWK
     Route: 065
     Dates: start: 20130930
  2. METHOTREXATE [Concomitant]
     Dosage: 1 ML, QWK
  3. PLAQUENIL                          /00072602/ [Concomitant]
     Dosage: 2 TABLETS DAILY

REACTIONS (9)
  - Jaw disorder [Not Recovered/Not Resolved]
  - Adverse drug reaction [Recovered/Resolved]
  - Animal scratch [Recovered/Resolved]
  - Tongue ulceration [Recovered/Resolved]
  - Oropharyngeal pain [Recovered/Resolved]
  - Pain in jaw [Recovered/Resolved]
  - Implant site inflammation [Recovered/Resolved]
  - Injection site bruising [Not Recovered/Not Resolved]
  - Vulvovaginal mycotic infection [Recovered/Resolved]
